FAERS Safety Report 10248999 (Version 1)
Quarter: 2014Q2

REPORT INFORMATION
  Report Type: Spontaneous
  Country: FR (occurrence: FR)
  Receive Date: 20140620
  Receipt Date: 20140620
  Transmission Date: 20141212
  Serious: Yes (Other)
  Sender: FDA-Public Use
  Company Number: FR-009507513-1406FRA009445

PATIENT
  Sex: Female

DRUGS (1)
  1. XELEVIA [Suspect]
     Indication: PRODUCT USED FOR UNKNOWN INDICATION
     Dosage: UNK
     Dates: start: 201311

REACTIONS (3)
  - Pancreatic cyst [Unknown]
  - Pancreatic calcification [Unknown]
  - Pruritus [Unknown]
